FAERS Safety Report 13895378 (Version 1)
Quarter: 2017Q3

REPORT INFORMATION
  Report Type: Spontaneous
  Country: US (occurrence: None)
  Receive Date: 20170817
  Receipt Date: 20170817
  Transmission Date: 20171127
  Serious: Yes (Hospitalization)
  Sender: FDA-Public Use
  Company Number: None

PATIENT
  Age: 25 Year
  Sex: Female

DRUGS (1)
  1. MAKENA [Suspect]
     Active Substance: HYDROXYPROGESTERONE CAPROATE
     Indication: PRENATAL CARE
     Dosage: 250 MG (1 ML) IM QWK
     Route: 030
     Dates: start: 20170509

REACTIONS (1)
  - Premature labour [None]

NARRATIVE: CASE EVENT DATE: 201707
